FAERS Safety Report 5932142-3 (Version None)
Quarter: 2008Q4

REPORT INFORMATION
  Report Type: 
  Country: None (occurrence: None)
  Receive Date: 20081027
  Receipt Date: 20081027
  Transmission Date: 20090506
  Serious: No
  Sender: FDA-Public Use
  Company Number: None

PATIENT
  Sex: Female
  Weight: 15.4223 kg

DRUGS (1)
  1. SINGULAIR [Suspect]
     Indication: HYPERSENSITIVITY
     Dosage: 1 PACKET ONCE A DAY OTHER
     Route: 050
     Dates: start: 20080929, end: 20081024

REACTIONS (5)
  - ABDOMINAL PAIN [None]
  - ABNORMAL DREAMS [None]
  - IRRITABILITY [None]
  - MIDDLE INSOMNIA [None]
  - MOOD ALTERED [None]
